FAERS Safety Report 6809580-X (Version None)
Quarter: 2010Q2

REPORT INFORMATION
  Report Type: 
  Country: None (occurrence: None)
  Receive Date: 20100630
  Receipt Date: 20100625
  Transmission Date: 20101027
  Serious: Yes (Life-Threatening, Other)
  Sender: FDA-Public Use
  Company Number: PHHY2010PT41650

PATIENT
  Sex: Female

DRUGS (6)
  1. VOLTAREN [Suspect]
     Indication: PAIN IN EXTREMITY
     Dosage: 1 DF, ONCE/SINGLE
     Route: 030
     Dates: start: 20100219, end: 20100219
  2. ETORICOXIB [Concomitant]
     Dosage: 1 PILL/DAY
     Route: 048
  3. CARVEDILOL [Concomitant]
     Dosage: 1 PILL/DAY
     Route: 048
  4. FUROSEMIDE [Concomitant]
     Dosage: 1 PILL/DAY
     Route: 048
  5. LOSARTAN POTASSIUM [Concomitant]
     Dosage: 1 PILL/DAY
     Route: 048
  6. HYDROCHLOROTHIAZIDE [Concomitant]
     Dosage: 1 PILL/DAY
     Route: 048

REACTIONS (13)
  - AMNESIA [None]
  - ASPARTATE AMINOTRANSFERASE INCREASED [None]
  - BLOOD ALKALINE PHOSPHATASE INCREASED [None]
  - BLOOD CHLORIDE INCREASED [None]
  - BLOOD CREATINE PHOSPHOKINASE INCREASED [None]
  - BLOOD CREATINE PHOSPHOKINASE MB [None]
  - BLOOD GLUCOSE INCREASED [None]
  - BLOOD LACTATE DEHYDROGENASE INCREASED [None]
  - BLOOD OSMOLARITY INCREASED [None]
  - BLOOD SODIUM INCREASED [None]
  - BLOOD UREA INCREASED [None]
  - HYPOTENSION [None]
  - MYOGLOBIN BLOOD INCREASED [None]
